FAERS Safety Report 16762057 (Version 2)
Quarter: 2020Q1

REPORT INFORMATION
  Report Type: Report from Study
  Country: AU (occurrence: AU)
  Receive Date: 20190830
  Receipt Date: 20200127
  Transmission Date: 20200409
  Serious: Yes (Death, Other)
  Sender: FDA-Public Use
  Company Number: AU-GLAXOSMITHKLINE-AU2019APC154144

PATIENT

DRUGS (1)
  1. TAFENOQUINE [Suspect]
     Active Substance: TAFENOQUINE
     Indication: PROPHYLAXIS

REACTIONS (1)
  - Completed suicide [Fatal]
